FAERS Safety Report 9748676 (Version 1)
Quarter: 2013Q4

REPORT INFORMATION
  Report Type: Spontaneous
  Country: US (occurrence: US)
  Receive Date: 20131212
  Receipt Date: 20131212
  Transmission Date: 20140711
  Serious: Yes (Other)
  Sender: FDA-Public Use
  Company Number: US-BAYER-2013-150617

PATIENT
  Age: 45 Year
  Sex: Female
  Weight: 90.7 kg

DRUGS (2)
  1. CIPRO [Suspect]
     Dosage: UNK
     Dates: start: 201007
  2. LEVAQUIN [Suspect]
     Dosage: UNK
     Dates: start: 201007

REACTIONS (3)
  - Skin infection [Not Recovered/Not Resolved]
  - Skin infection [Not Recovered/Not Resolved]
  - Skin burning sensation [Not Recovered/Not Resolved]
